FAERS Safety Report 5014401-4 (Version None)
Quarter: 2006Q2

REPORT INFORMATION
  Report Type: 
  Country: None (occurrence: None)
  Receive Date: 20060531
  Receipt Date: 20060521
  Transmission Date: 20061013
  Serious: Yes (Hospitalization)
  Sender: FDA-Public Use
  Company Number: US-JNJFOC-20060504870

PATIENT
  Age: 5 Decade
  Sex: Female

DRUGS (2)
  1. REMICADE [Suspect]
     Indication: CROHN'S DISEASE
     Dosage: FIRST DOSE
     Route: 042
  2. PREDNISONE [Concomitant]
     Indication: CROHN'S DISEASE
     Dosage: 40-60 MG DAILY

REACTIONS (2)
  - HYPOTENSION [None]
  - RASH MACULAR [None]
